FAERS Safety Report 5757148-9 (Version None)
Quarter: 2008Q2

REPORT INFORMATION
  Report Type: 
  Country: None (occurrence: None)
  Receive Date: 20080603
  Receipt Date: 20080523
  Transmission Date: 20081010
  Serious: Yes (Hospitalization)
  Sender: FDA-Public Use
  Company Number: US-JNJFOC-20080505388

PATIENT
  Sex: Male
  Weight: 99.79 kg

DRUGS (14)
  1. DURAGESIC-100 [Suspect]
     Route: 062
  2. DURAGESIC-100 [Suspect]
     Indication: ARTHRITIS
     Route: 062
  3. DURAGESIC-100 [Suspect]
     Indication: BACK PAIN
     Route: 062
  4. FENTANYL TRANSDERMAL SYSTEM [Suspect]
     Route: 062
  5. FENTANYL TRANSDERMAL SYSTEM [Suspect]
     Indication: ARTHRITIS
     Route: 062
  6. FENTANYL TRANSDERMAL SYSTEM [Suspect]
     Indication: BACK PAIN
     Route: 062
  7. FEXOFENADINE [Concomitant]
     Route: 048
  8. FOLIC ACID [Concomitant]
     Route: 048
  9. PLAVIX [Concomitant]
     Indication: ARTERIAL OCCLUSIVE DISEASE
     Route: 048
  10. TOLECTIN [Concomitant]
     Route: 048
  11. NEXIUM [Concomitant]
     Indication: GASTRIC DISORDER
     Route: 048
  12. ALPRAZOLAM [Concomitant]
     Route: 048
  13. METHOTREXATE [Concomitant]
     Indication: RHEUMATOID ARTHRITIS
     Dosage: 2.5 6 WEEKLY
     Route: 048
  14. LIPITOR [Concomitant]
     Indication: BLOOD CHOLESTEROL
     Route: 048

REACTIONS (7)
  - AGITATION [None]
  - ARTHRALGIA [None]
  - BACK PAIN [None]
  - DEPRESSION [None]
  - HYPERHIDROSIS [None]
  - INTRACARDIAC THROMBUS [None]
  - SLEEP DISORDER [None]
